FAERS Safety Report 17229304 (Version 3)
Quarter: 2020Q1

REPORT INFORMATION
  Report Type: Report from Study
  Country: US (occurrence: US)
  Receive Date: 20200103
  Receipt Date: 20200331
  Transmission Date: 20200409
  Serious: No
  Sender: FDA-Public Use
  Company Number: NVSC2020US000682

PATIENT
  Age: 66 Year
  Sex: Male

DRUGS (2)
  1. BEOVU [Suspect]
     Active Substance: BROLUCIZUMAB-DBLL
     Indication: NEOVASCULAR AGE-RELATED MACULAR DEGENERATION
     Dosage: ONE SINGLE DOSE, RIGHT EYE, VIAL
     Route: 050
     Dates: start: 20191203
  2. BEOVU [Suspect]
     Active Substance: BROLUCIZUMAB-DBLL
     Dosage: BOTH EYES, FIRST INJECTION OF BEOVU IN LEFT EYE AND SECOND INJECTION OF BEOVU IN THE RIGHT EYE
     Route: 047
     Dates: start: 20191231

REACTIONS (7)
  - Ophthalmological examination [Unknown]
  - Vision blurred [Unknown]
  - Vitreous floaters [Unknown]
  - Eye disorder [Recovering/Resolving]
  - Metamorphopsia [Unknown]
  - Product solubility abnormal [Unknown]
  - Ocular discomfort [Unknown]

NARRATIVE: CASE EVENT DATE: 20191231
